FAERS Safety Report 6342327-2 (Version None)
Quarter: 2009Q3

REPORT INFORMATION
  Report Type: 
  Country: None (occurrence: None)
  Receive Date: 20090907
  Receipt Date: 20070802
  Transmission Date: 20100115
  Serious: Yes (Other)
  Sender: FDA-Public Use
  Company Number: US-ASTRAZENECA-2007UW25945

PATIENT
  Age: 11344 Day
  Sex: Female
  Weight: 99.8 kg

DRUGS (19)
  1. SEROQUEL [Suspect]
     Indication: MAJOR DEPRESSION
     Dosage: 25-400 MG, QHS
     Route: 048
     Dates: start: 20000301
  2. SEROQUEL [Suspect]
     Indication: INSOMNIA
     Dosage: 25-400 MG, QHS
     Route: 048
     Dates: start: 20000301
  3. SEROQUEL [Suspect]
     Dosage: 50-600 MG
     Route: 048
     Dates: start: 20000501
  4. SEROQUEL [Suspect]
     Dosage: 50-600 MG
     Route: 048
     Dates: start: 20000501
  5. ZYPREXA [Concomitant]
     Dates: start: 20010514, end: 20010811
  6. GEODON [Concomitant]
     Dates: start: 20060101
  7. DEPAKOTE [Concomitant]
     Dates: start: 20040101, end: 20060101
  8. ZOLOFT [Concomitant]
     Dosage: 50-100 MG
     Dates: start: 19990503
  9. CYMBALTA [Concomitant]
     Route: 048
     Dates: start: 20070601
  10. NEXIUM [Concomitant]
     Route: 048
     Dates: start: 20070601
  11. LUNESTA [Concomitant]
     Indication: SLEEP DISORDER
     Dosage: 3 MG QHS PRN
     Route: 048
     Dates: start: 20070601
  12. ZOCOR [Concomitant]
     Route: 048
     Dates: start: 20070601
  13. LEXAPRO [Concomitant]
     Dates: start: 20070601
  14. DETROL LA [Concomitant]
     Route: 048
     Dates: start: 20070601
  15. LORAZEPAM [Concomitant]
     Indication: ANXIETY
     Dosage: 1 MG TID PRN
     Route: 048
     Dates: start: 20070601
  16. AMARYL [Concomitant]
     Route: 048
     Dates: start: 20070601
  17. ALBUTEROL [Concomitant]
     Indication: ASTHMA
     Dosage: 2 PUFFS
     Dates: start: 20070601
  18. LANTUS [Concomitant]
     Dosage: 60-65 UNITS Q AM
     Route: 023
     Dates: start: 20070101
  19. LANTUS [Concomitant]
     Dosage: 60-65 UNITS Q AM
     Route: 058
     Dates: start: 20070101

REACTIONS (5)
  - BLOOD CHOLESTEROL INCREASED [None]
  - DIABETES MELLITUS [None]
  - HYPERLIPIDAEMIA [None]
  - LEG AMPUTATION [None]
  - TYPE 2 DIABETES MELLITUS [None]
